FAERS Safety Report 6274998-3 (Version None)
Quarter: 2009Q3

REPORT INFORMATION
  Report Type: 
  Country: None (occurrence: None)
  Receive Date: 20090717
  Receipt Date: 20090703
  Transmission Date: 20100115
  Serious: Yes (Other)
  Sender: FDA-Public Use
  Company Number: 8044619

PATIENT
  Age: 20 Year
  Sex: Female
  Weight: 60 kg

DRUGS (4)
  1. KEPPRA [Suspect]
     Indication: EPILEPSY
     Dosage: 250 MG 2/D
     Dates: end: 20090322
  2. KEPPRA [Suspect]
     Indication: EPILEPSY
     Dosage: 500 MG 2/D
     Dates: start: 20090323
  3. VALPROATE [Suspect]
     Indication: EPILEPSY
     Dosage: 1000 MG/D
     Dates: end: 20090313
  4. HORMONES [Concomitant]

REACTIONS (1)
  - LEUKOPENIA [None]
